FAERS Safety Report 7490732-3 (Version None)
Quarter: 2011Q2

REPORT INFORMATION
  Report Type: 
  Country: None (occurrence: None)
  Receive Date: 20110519
  Receipt Date: 20091120
  Transmission Date: 20111010
  Serious: Yes (Death, Hospitalization, Other)
  Sender: FDA-Public Use
  Company Number: US-BAYER-200940043NA

PATIENT
  Age: 74 Year
  Sex: Male
  Weight: 86.168 kg

DRUGS (16)
  1. INSULIN [Concomitant]
     Dosage: 5 UNITS
  2. TRASYLOL [Suspect]
     Indication: AORTIC SURGERY
     Dosage: 1 ML, TEST DOSE
     Route: 042
     Dates: start: 20050902, end: 20050902
  3. AVAPRO [Concomitant]
     Dosage: 150 MG, QD
     Route: 048
  4. HEPARIN SODIUM [Concomitant]
     Dosage: 20000 UNITS
  5. LIPITOR [Concomitant]
     Dosage: 40 MG, QD
     Route: 048
  6. ACETYLSALICYLIC ACID SRT [Concomitant]
     Dosage: 81 MG, QD
     Route: 048
  7. TRASYLOL [Suspect]
     Indication: CORONARY ARTERY BYPASS
     Dosage: 50 ML LOADING DOSE FOLLOWED BY 30 ML / HOUR INFUSION
     Route: 042
     Dates: start: 20050902, end: 20050902
  8. DOPAMINE HCL [Concomitant]
     Dosage: 8 MICROGRAM /KG/MIN
  9. METFORMIN HCL [Concomitant]
     Dosage: 500 MG, QD
     Route: 048
  10. NITROGLYCERIN [Concomitant]
     Dosage: 1039.91MICROGRAM
  11. PHENYLEPHRINE HCL [Concomitant]
     Dosage: 50 MICROGRAM
  12. RED BLOOD CELLS [Concomitant]
     Dosage: 3 UNITS
     Dates: start: 20050902
  13. HYDROCHLOROTHIAZIDE [Concomitant]
     Dosage: 25 MG, QD
     Route: 048
  14. CEFAZOLIN [Concomitant]
     Dosage: 1000 MG, UNK
  15. DEXAMETHASONE [Concomitant]
     Dosage: 10 MG, UNK
  16. PROTAMINE SULFATE [Concomitant]
     Dosage: 140 MG, UNK

REACTIONS (9)
  - ANXIETY [None]
  - FEAR [None]
  - INJURY [None]
  - DEATH [None]
  - UNEVALUABLE EVENT [None]
  - PAIN [None]
  - RENAL FAILURE [None]
  - ANHEDONIA [None]
  - DEPRESSION [None]
